FAERS Safety Report 6051591-9 (Version None)
Quarter: 2009Q1

REPORT INFORMATION
  Report Type: 
  Country: None (occurrence: None)
  Receive Date: 20090126
  Receipt Date: 20090113
  Transmission Date: 20090719
  Serious: Yes (Hospitalization, Disabling, Other)
  Sender: FDA-Public Use
  Company Number: US-MERCK-0710USA06151

PATIENT
  Age: 63 Year
  Sex: Male
  Weight: 94 kg

DRUGS (10)
  1. FOSAMAX [Suspect]
     Indication: OSTEOPOROSIS
     Route: 048
     Dates: start: 19980101, end: 20070101
  2. AMBIEN [Concomitant]
     Route: 065
     Dates: start: 20030814, end: 20071221
  3. DICYCLOMINE HYDROCHLORIDE [Concomitant]
     Route: 065
     Dates: start: 20031215, end: 20040422
  4. METOPROLOL [Concomitant]
     Route: 065
     Dates: start: 20031229, end: 20071221
  5. SUCRALFATE [Concomitant]
     Route: 065
     Dates: start: 20031214, end: 20040422
  6. TRILEPTAL [Concomitant]
     Route: 065
     Dates: start: 20031106, end: 20040115
  7. XENICAL [Concomitant]
     Route: 065
     Dates: start: 20031110, end: 20040509
  8. XENICAL [Concomitant]
     Route: 065
     Dates: start: 20040914
  9. GLUCOVANCE [Concomitant]
     Route: 065
     Dates: start: 20030903, end: 20040513
  10. FOSAMAX PLUS D [Suspect]
     Indication: OSTEOPOROSIS
     Route: 048
     Dates: start: 20070101

REACTIONS (33)
  - ADVERSE DRUG REACTION [None]
  - ANXIETY [None]
  - ARTHRITIS [None]
  - ARTHROPOD BITE [None]
  - BACK INJURY [None]
  - BENIGN PROSTATIC HYPERPLASIA [None]
  - CARDIAC DISORDER [None]
  - CATARACT [None]
  - CONSTIPATION [None]
  - DEPRESSION [None]
  - DIVERTICULITIS [None]
  - DIVERTICULUM [None]
  - DIZZINESS [None]
  - ERECTILE DYSFUNCTION [None]
  - FATIGUE [None]
  - GASTROENTERITIS [None]
  - GASTROOESOPHAGEAL REFLUX DISEASE [None]
  - HEAD INJURY [None]
  - HEADACHE [None]
  - HYPERLIPIDAEMIA [None]
  - HYPERSENSITIVITY [None]
  - MUSCULOSKELETAL PAIN [None]
  - NAUSEA [None]
  - NERVOUSNESS [None]
  - OSTEOMYELITIS [None]
  - OSTEONECROSIS [None]
  - OTITIS MEDIA [None]
  - PEPTIC ULCER [None]
  - PERIODONTAL DISEASE [None]
  - RHINITIS ALLERGIC [None]
  - ROAD TRAFFIC ACCIDENT [None]
  - SLEEP DISORDER [None]
  - SPINAL DISORDER [None]
